FAERS Safety Report 20007789 (Version 1)
Quarter: 2021Q4

REPORT INFORMATION
  Report Type: Spontaneous
  Country: GB (occurrence: GB)
  Receive Date: 20211029
  Receipt Date: 20211029
  Transmission Date: 20220303
  Serious: Yes (Other)
  Sender: FDA-Public Use
  Company Number: GB-JNJFOC-20211039758

PATIENT
  Sex: Female

DRUGS (1)
  1. MINOXIDIL [Suspect]
     Active Substance: MINOXIDIL
     Indication: Alopecia
     Dosage: TWICE A DAY BUT SOMETIMES ONLY TOOK ONCE A DAY?(START AND STOP DATES) 17TH OF SEPTEMBER
     Route: 061

REACTIONS (6)
  - Dysuria [Not Recovered/Not Resolved]
  - Pleural effusion [Not Recovered/Not Resolved]
  - Deformity [Not Recovered/Not Resolved]
  - Product use in unapproved indication [Not Recovered/Not Resolved]
  - Off label use [Not Recovered/Not Resolved]
  - Hypersensitivity [Not Recovered/Not Resolved]
